FAERS Safety Report 9791444 (Version 3)
Quarter: 2014Q1

REPORT INFORMATION
  Report Type: Spontaneous
  Country: JP (occurrence: JP)
  Receive Date: 20140101
  Receipt Date: 20140212
  Transmission Date: 20141002
  Serious: No
  Sender: FDA-Public Use
  Company Number: PHHY2013JP148204

PATIENT
  Sex: 0

DRUGS (3)
  1. RIVASTIGMIN [Suspect]
     Indication: DEMENTIA ALZHEIMER^S TYPE
     Dosage: 4.5 MG (RIVASTIGMINE BASE ), QD
     Route: 062
  2. RIVASTIGMIN [Suspect]
     Dosage: 9 MG (RIVASTIGMINE BASE ), QD
     Route: 062
  3. RIVASTIGMIN [Suspect]
     Dosage: 13.5 MG (RIVASTIGMINE BASE ),APPLICATION OF HALF OF PATCH) DAILY
     Route: 062
     Dates: end: 2013

REACTIONS (1)
  - Medication error [Unknown]
